FAERS Safety Report 6688293-1 (Version None)
Quarter: 2010Q2

REPORT INFORMATION
  Report Type: 
  Country: None (occurrence: None)
  Receive Date: 20100420
  Receipt Date: 20100408
  Transmission Date: 20101027
  Serious: Yes (Life-Threatening, Hospitalization)
  Sender: FDA-Public Use
  Company Number: JP-ROCHE-448176

PATIENT
  Sex: Male

DRUGS (30)
  1. TOCILIZUMAB [Suspect]
     Indication: CASTLEMAN'S DISEASE
     Route: 041
     Dates: start: 20050804, end: 20050818
  2. TOCILIZUMAB [Suspect]
     Route: 041
     Dates: start: 20050829, end: 20070104
  3. TOCILIZUMAB [Suspect]
     Route: 041
     Dates: start: 20070109, end: 20070606
  4. TOCILIZUMAB [Suspect]
     Route: 041
     Dates: start: 20070808
  5. LASIX [Suspect]
     Indication: CASTLEMAN'S DISEASE
     Dosage: IN THE MORNING: 40MG, IN THE DAYTIME: 40MG. FORM ORAL FORMULATION
     Route: 048
     Dates: start: 20050501, end: 20070319
  6. LASIX [Suspect]
     Route: 048
     Dates: start: 20070320
  7. PREDNISOLONE [Suspect]
     Indication: CASTLEMAN'S DISEASE
     Route: 048
     Dates: start: 20050501, end: 20070219
  8. PREDNISOLONE [Suspect]
     Route: 048
     Dates: start: 20070220
  9. MEDICON [Concomitant]
     Route: 048
     Dates: start: 20050501, end: 20060911
  10. MUCODYNE [Concomitant]
     Route: 048
     Dates: start: 20050501, end: 20060911
  11. ZANTAC [Concomitant]
     Route: 048
     Dates: start: 20050501, end: 20060911
  12. ZANTAC [Concomitant]
     Route: 048
  13. COTRIM [Concomitant]
     Route: 048
     Dates: start: 20050501, end: 20060911
  14. DIFLUCAN [Concomitant]
     Route: 048
     Dates: start: 20050501, end: 20060911
  15. DIFLUCAN [Concomitant]
     Route: 048
  16. SELBEX [Concomitant]
     Dosage: FORM ORAL FORMULATION
     Route: 048
     Dates: start: 20050501, end: 20071003
  17. GASTROM [Concomitant]
     Route: 048
     Dates: start: 20050501, end: 20060911
  18. PRIMPERAN [Concomitant]
     Dosage: FORM ORAL FORMULATION
     Route: 048
     Dates: start: 20050501, end: 20060911
  19. MARZULENE-S [Concomitant]
     Dosage: FORM ORAL FORMULATION
     Route: 048
     Dates: start: 20050501, end: 20060911
  20. LIPITOR [Concomitant]
  21. RENIVACE [Concomitant]
     Route: 048
     Dates: start: 20060718, end: 20060822
  22. RENIVACE [Concomitant]
     Route: 048
     Dates: start: 20060823, end: 20070305
  23. RENIVACE [Concomitant]
     Route: 048
     Dates: start: 20070306
  24. ADALAT CC [Concomitant]
     Route: 048
     Dates: start: 20060823
  25. WARFARIN SODIUM [Concomitant]
     Route: 048
     Dates: start: 20060823
  26. OLMESARTAN MEDOXOMIL [Concomitant]
     Route: 048
     Dates: start: 20060826, end: 20060919
  27. CALBLOCK [Concomitant]
     Route: 048
     Dates: start: 20060826
  28. ACTONEL [Concomitant]
     Route: 048
  29. LIPITOR [Concomitant]
     Route: 048
  30. ALLOPURINOL [Concomitant]
     Route: 048

REACTIONS (10)
  - ANAEMIA [None]
  - BLOOD ALKALINE PHOSPHATASE INCREASED [None]
  - BLOOD LACTATE DEHYDROGENASE INCREASED [None]
  - COLONIC POLYP [None]
  - ENTEROCOLITIS [None]
  - FRACTURE [None]
  - HYPERLIPIDAEMIA [None]
  - HYPERURICAEMIA [None]
  - OSTEOPENIA [None]
  - PULMONARY INFARCTION [None]
